FAERS Safety Report 19987941 (Version 1)
Quarter: 2021Q4

REPORT INFORMATION
  Report Type: Spontaneous
  Country: GB (occurrence: GB)
  Receive Date: 20211023
  Receipt Date: 20211023
  Transmission Date: 20220303
  Serious: Yes (Hospitalization, Other)
  Sender: FDA-Public Use
  Company Number: GB-002147023-NVSC2021GB231232

PATIENT
  Age: 2 Year
  Sex: Female
  Weight: 10.8 kg

DRUGS (16)
  1. VENETOCLAX [Suspect]
     Active Substance: VENETOCLAX
     Indication: Refractory cancer
     Dosage: (ROUTE - VIA TUBE SUPPORT) (150 MG, 1 IN 1 D)
     Route: 048
     Dates: start: 20210803, end: 20210811
  2. VENETOCLAX [Suspect]
     Active Substance: VENETOCLAX
     Dosage: (ROUTE - VIA TUBE SUPPORT) (80MG, 1 IN 1 D)
     Route: 048
     Dates: start: 20210802, end: 20210802
  3. VENETOCLAX [Suspect]
     Active Substance: VENETOCLAX
     Dosage: 150 MG (150MG, 1 IN 1 D)
     Route: 048
     Dates: start: 20210823, end: 20210901
  4. TOPOTECAN HYDROCHLORIDE [Suspect]
     Active Substance: TOPOTECAN HYDROCHLORIDE
     Indication: Refractory cancer
     Dosage: 0.75 MG/M2 (GIVEN FOR 5 DAYS EVERY 21 DAYS)
     Route: 042
     Dates: start: 20210802, end: 20210827
  5. CYCLOPHOSPHAMIDE [Suspect]
     Active Substance: CYCLOPHOSPHAMIDE
     Indication: Refractory cancer
     Dosage: 250 MG/M2 (GIVEN FOR 5 DAYS EVERY 21 DAYS)
     Route: 042
     Dates: start: 20210802, end: 20210827
  6. CYCLIZINE [Concomitant]
     Active Substance: CYCLIZINE
     Indication: Prophylaxis of nausea and vomiting
     Dosage: UNK
     Route: 065
  7. CYCLIZINE [Concomitant]
     Active Substance: CYCLIZINE
     Indication: Vomiting
  8. DEXAMETHASONE [Concomitant]
     Active Substance: DEXAMETHASONE
     Indication: Prophylaxis
     Dosage: UNK
     Route: 065
  9. FUROSEMIDE [Concomitant]
     Active Substance: FUROSEMIDE
     Indication: Transfusion
     Dosage: (5.4 MG,4 IN 1 AS REQUIRED)
     Route: 042
     Dates: start: 20210805
  10. FUROSEMIDE [Concomitant]
     Active Substance: FUROSEMIDE
     Indication: Prophylaxis
  11. MELATONIN [Concomitant]
     Active Substance: MELATONIN
     Indication: Prophylaxis
     Dosage: 2 MG (2 MG, 1 IN 1 D)
     Route: 048
     Dates: start: 20210801
  12. METHADONE [Concomitant]
     Active Substance: METHADONE HYDROCHLORIDE
     Indication: Pain
     Dosage: 1.2 MG (0.6 MG, 2 IN 1 D)
     Route: 048
     Dates: start: 20210805
  13. METOCLOPRAMIDE [Concomitant]
     Active Substance: METOCLOPRAMIDE
     Indication: Prophylaxis of nausea and vomiting
     Dosage: 3 MG (1 MG, 3 IN 1 D)
     Route: 042
     Dates: start: 20210803
  14. MORPHINE SULFATE [Concomitant]
     Active Substance: MORPHINE SULFATE
     Indication: Pain
     Dosage: (2.4 MG, 1 IN 4 AS REQUIRED)
     Route: 065
     Dates: start: 20210805
  15. ONDANSETRON [Concomitant]
     Active Substance: ONDANSETRON
     Indication: Vomiting
     Dosage: UNK
     Route: 065
     Dates: start: 20210824
  16. ACETAMINOPHEN [Concomitant]
     Active Substance: ACETAMINOPHEN
     Indication: Pain
     Dosage: EVERY 6 HOURS (155 MG,1 AS REQUIRED)
     Route: 042
     Dates: start: 20210802

REACTIONS (3)
  - Pyrexia [Unknown]
  - Febrile neutropenia [Recovered/Resolved]
  - Upper respiratory tract infection [Not Recovered/Not Resolved]

NARRATIVE: CASE EVENT DATE: 20210909
